FAERS Safety Report 12133845 (Version 1)
Quarter: 2016Q1

REPORT INFORMATION
  Report Type: Spontaneous
  Country: US (occurrence: US)
  Receive Date: 20160301
  Receipt Date: 20160301
  Transmission Date: 20160526
  Serious: Yes (Other)
  Sender: FDA-Public Use
  Company Number: US-DEXPHARM-20160198

PATIENT
  Age: 81 Year
  Sex: Male
  Weight: 72.56 kg

DRUGS (1)
  1. OMEPRAZOLE DELAYED RELEASE [Suspect]
     Active Substance: OMEPRAZOLE
     Indication: GASTROOESOPHAGEAL REFLUX DISEASE
     Dosage: 20 MG, QD
     Route: 048
     Dates: start: 2011, end: 20160214

REACTIONS (2)
  - Pre-existing disease [Not Recovered/Not Resolved]
  - Progressive cerebellar degeneration [Recovering/Resolving]

NARRATIVE: CASE EVENT DATE: 2014
